FAERS Safety Report 6888597-3 (Version None)
Quarter: 2010Q3

REPORT INFORMATION
  Report Type: 
  Country: None (occurrence: None)
  Receive Date: 20100730
  Receipt Date: 20071004
  Transmission Date: 20110219
  Serious: No
  Sender: FDA-Public Use
  Company Number: US-PFIZER INC-2007027843

PATIENT
  Sex: Male
  Weight: 77.11 kg

DRUGS (3)
  1. LIPITOR [Suspect]
     Indication: LOW DENSITY LIPOPROTEIN ABNORMAL
     Dates: start: 20020101
  2. LIPITOR [Suspect]
     Indication: BLOOD CHOLESTEROL
  3. LISINOPRIL [Concomitant]

REACTIONS (5)
  - ABDOMINAL PAIN UPPER [None]
  - DYSPEPSIA [None]
  - GASTRITIS [None]
  - GASTROENTERITIS VIRAL [None]
  - INTENTIONAL DRUG MISUSE [None]
